FAERS Safety Report 5014132-0 (Version None)
Quarter: 2006Q2

REPORT INFORMATION
  Report Type: 
  Country: None (occurrence: None)
  Receive Date: 20060414
  Receipt Date: 20060106
  Transmission Date: 20061013
  Serious: No
  Sender: FDA-Public Use
  Company Number: 2006SP000100

PATIENT
  Age: 66 Year
  Sex: Female
  Weight: 77.1115 kg

DRUGS (6)
  1. LUNESTA [Suspect]
     Indication: INSOMNIA
     Dosage: SEE IMAGE
     Route: 048
     Dates: start: 20051222, end: 20051222
  2. LUNESTA [Suspect]
     Indication: INSOMNIA
     Dosage: SEE IMAGE
     Route: 048
     Dates: start: 20051224, end: 20051224
  3. ALLEGRA [Concomitant]
  4. ANTIHYPERTENSIVES [Concomitant]
  5. CELEBREX [Concomitant]
  6. SYNTHROID [Concomitant]

REACTIONS (1)
  - DYSGEUSIA [None]
